FAERS Safety Report 9735506 (Version 1)
Quarter: 2013Q4

REPORT INFORMATION
  Report Type: Spontaneous
  Country: US (occurrence: US)
  Receive Date: 20131206
  Receipt Date: 20131206
  Transmission Date: 20140711
  Serious: No
  Sender: FDA-Public Use
  Company Number: US-GILEAD-2009-0023381

PATIENT
  Age: 63 Year
  Sex: Female

DRUGS (11)
  1. LETAIRIS [Suspect]
     Indication: PULMONARY ARTERIAL HYPERTENSION
     Route: 048
     Dates: start: 20081231
  2. REVATIO [Concomitant]
  3. FUROSEMIDE [Concomitant]
  4. BUMETANIDE [Concomitant]
  5. HYDROCHLOROTHIAZIDE [Concomitant]
  6. NORVASC [Concomitant]
  7. POTASSIUM [Concomitant]
  8. SYNTHROID [Concomitant]
  9. ZANTAC [Concomitant]
  10. ZOLOFT [Concomitant]
  11. URSO [Concomitant]

REACTIONS (1)
  - Nasal congestion [Not Recovered/Not Resolved]
